FAERS Safety Report 10236444 (Version 1)
Quarter: 2014Q2

REPORT INFORMATION
  Report Type: Spontaneous
  Country: US (occurrence: US)
  Receive Date: 20140613
  Receipt Date: 20140613
  Transmission Date: 20141212
  Serious: Yes (Other)
  Sender: FDA-Public Use
  Company Number: US-ROXANE LABORATORIES, INC.-2014-RO-00899RO

PATIENT
  Age: 65 Year
  Sex: 0

DRUGS (4)
  1. DEXAMETHASONE [Suspect]
     Indication: PLASMA CELL MYELOMA
     Route: 048
     Dates: start: 20121228, end: 20130116
  2. CYTOXAN [Suspect]
     Indication: PLASMA CELL MYELOMA
     Route: 042
     Dates: start: 20121228, end: 20121231
  3. ADRIAMYCIN [Suspect]
     Indication: PLASMA CELL MYELOMA
     Route: 042
     Dates: start: 20121228, end: 20121231
  4. MESNA [Suspect]
     Indication: PLASMA CELL MYELOMA
     Route: 042
     Dates: start: 20121228, end: 20121231

REACTIONS (1)
  - Leukaemia recurrent [Unknown]
